FAERS Safety Report 5100656-4 (Version None)
Quarter: 2006Q3

REPORT INFORMATION
  Report Type: 
  Country: None (occurrence: None)
  Receive Date: 20060731
  Receipt Date: 20050705
  Transmission Date: 20061208
  Serious: Yes (Life-Threatening)
  Sender: FDA-Public Use
  Company Number: 215860

PATIENT
  Age: 79 Year
  Sex: Male

DRUGS (1)
  1. RITUXAN [Suspect]
     Dosage: 750 MG INTRAVENOUS
     Route: 042
     Dates: start: 20060622

REACTIONS (4)
  - BACK PAIN [None]
  - FEELING COLD [None]
  - NAUSEA [None]
  - TREMOR [None]
